FAERS Safety Report 5977937-5 (Version None)
Quarter: 2008Q4

REPORT INFORMATION
  Report Type: 
  Country: None (occurrence: None)
  Receive Date: 20081203
  Receipt Date: 20081126
  Transmission Date: 20090506
  Serious: Yes (Death, Hospitalization)
  Sender: FDA-Public Use
  Company Number: US-ROXANE LABORATORIES, INC.-2008-RO-00297RO

PATIENT
  Age: 50 Year
  Sex: Female

DRUGS (7)
  1. PREDNISONE TAB [Suspect]
     Indication: IMMUNOSUPPRESSANT DRUG THERAPY
  2. MYCOPHENOLATE MOFETIL (CAPSULES) [Suspect]
     Indication: IMMUNOSUPPRESSANT DRUG THERAPY
  3. TACROLIMUS [Suspect]
     Indication: IMMUNOSUPPRESSANT DRUG THERAPY
  4. CIPROFLOXACIN [Suspect]
     Indication: URINARY TRACT INFECTION
  5. METRONIDAZOLE [Suspect]
     Indication: CLOSTRIDIUM DIFFICILE COLITIS
  6. VANCOMYCIN [Concomitant]
     Indication: PNEUMONITIS
  7. CEFEPIME [Concomitant]
     Indication: PNEUMONITIS

REACTIONS (5)
  - DEATH [None]
  - MULTI-ORGAN FAILURE [None]
  - PULMONARY ALVEOLAR HAEMORRHAGE [None]
  - RESPIRATORY FAILURE [None]
  - STRONGYLOIDIASIS [None]
